FAERS Safety Report 12460503 (Version 1)
Quarter: 2016Q2

REPORT INFORMATION
  Report Type: Other
  Country: TW (occurrence: TW)
  Receive Date: 20160613
  Receipt Date: 20160613
  Transmission Date: 20160815
  Serious: Yes (Other)
  Sender: FDA-Public Use
  Company Number: TW-GUERBET LLC-1053728

PATIENT
  Age: 80 Year
  Sex: Female

DRUGS (1)
  1. LIPIODOL [Suspect]
     Active Substance: ETHIODIZED OIL
     Indication: SCLEROTHERAPY

REACTIONS (3)
  - Pleural effusion [Recovered/Resolved]
  - Extravasation [Recovered/Resolved]
  - Off label use [Recovered/Resolved]
